FAERS Safety Report 4604999-X (Version None)
Quarter: 2005Q1

REPORT INFORMATION
  Report Type: 
  Country: None (occurrence: None)
  Receive Date: 20050310
  Receipt Date: 20050310
  Transmission Date: 20050727
  Serious: Yes (Death)
  Sender: FDA-Public Use
  Company Number: None

PATIENT
  Sex: Male
  Weight: 127.0072 kg

DRUGS (1)
  1. VIOXX [Suspect]
     Dosage: 12.5 MG DAILY

REACTIONS (1)
  - MYOCARDIAL INFARCTION [None]
